FAERS Safety Report 21923086 (Version 2)
Quarter: 2023Q1

REPORT INFORMATION
  Report Type: Spontaneous
  Country: DE (occurrence: DE)
  Receive Date: 20230129
  Receipt Date: 20230211
  Transmission Date: 20230418
  Serious: Yes (Other)
  Sender: FDA-Public Use
  Company Number: DE-BFARM-23000403

PATIENT
  Sex: Female

DRUGS (3)
  1. AMOXICILLIN [Suspect]
     Active Substance: AMOXICILLIN
     Indication: Antibiotic prophylaxis
     Dosage: UNK
     Route: 065
     Dates: start: 202212
  2. ACETYLCYSTEINE [Suspect]
     Active Substance: ACETYLCYSTEINE
     Indication: Dyspnoea
     Dosage: 1 DOSAGE FORM, ONCE A DAY,1X1 BEUTEL
     Route: 065
     Dates: start: 202212
  3. ACETYLCYSTEINE [Suspect]
     Active Substance: ACETYLCYSTEINE
     Indication: Bronchitis

REACTIONS (14)
  - Syncope [Unknown]
  - Dyspnoea [Unknown]
  - Pyrexia [Unknown]
  - Blood pressure decreased [Unknown]
  - Nausea [Unknown]
  - Pruritus [Not Recovered/Not Resolved]
  - Anxiety [Unknown]
  - Urticaria [Unknown]
  - Asthenia [Unknown]
  - Diarrhoea [Unknown]
  - Cardiovascular disorder [Unknown]
  - Bronchospasm [Unknown]
  - Skin disorder [Not Recovered/Not Resolved]
  - Pustule [Not Recovered/Not Resolved]
